FAERS Safety Report 7888452-6 (Version None)
Quarter: 2011Q4

REPORT INFORMATION
  Report Type: 
  Country: None (occurrence: None)
  Receive Date: 20111101
  Receipt Date: 20111021
  Transmission Date: 20120403
  Serious: Yes (Hospitalization, Other)
  Sender: FDA-Public Use
  Company Number: AUR-APL-2011-05539

PATIENT
  Age: 24 Year
  Sex: Female

DRUGS (3)
  1. CLOBAZAM (CLOBAZAM) [Suspect]
     Indication: CONVULSION
     Dosage: (15 MG, 1 D)
  2. CARBAMAZEPINE [Concomitant]
  3. LEVETIRACETAM [Suspect]
     Indication: CONVULSION
     Dosage: (1500 MG, 1 D)

REACTIONS (8)
  - MEMORY IMPAIRMENT [None]
  - BRADYPHRENIA [None]
  - AURA [None]
  - CONVULSION [None]
  - CONFUSIONAL STATE [None]
  - STATUS EPILEPTICUS [None]
  - APHASIA [None]
  - CONDITION AGGRAVATED [None]
